FAERS Safety Report 7765427-9 (Version None)
Quarter: 2011Q3

REPORT INFORMATION
  Report Type: 
  Country: None (occurrence: None)
  Receive Date: 20110921
  Receipt Date: 20110916
  Transmission Date: 20111222
  Serious: Yes (Hospitalization, Other)
  Sender: FDA-Public Use
  Company Number: CA-BRISTOL-MYERS SQUIBB COMPANY-16020042

PATIENT
  Age: 53 Year
  Sex: Male

DRUGS (2)
  1. FRAGMIN [Suspect]
     Indication: ATRIAL FIBRILLATION
     Dates: start: 20110726, end: 20110827
  2. IPILIMUMAB [Suspect]
     Indication: MALIGNANT MELANOMA
     Route: 042
     Dates: start: 20110728, end: 20110907

REACTIONS (3)
  - GENERAL PHYSICAL HEALTH DETERIORATION [None]
  - ASTHENIA [None]
  - HAEMATURIA [None]
